FAERS Safety Report 25343811 (Version 1)
Quarter: 2025Q2

REPORT INFORMATION
  Report Type: Spontaneous
  Country: US (occurrence: None)
  Receive Date: 20250521
  Receipt Date: 20250521
  Transmission Date: 20250717
  Serious: Yes (Disabling)
  Sender: FDA-CTU
  Company Number: None

PATIENT
  Age: 37 Year
  Sex: Female
  Weight: 94.5 kg

DRUGS (13)
  1. HUMIRA [Suspect]
     Active Substance: ADALIMUMAB
     Indication: Rheumatoid arthritis
     Route: 030
     Dates: start: 20231202, end: 20231202
  2. FOLIC ACID [Concomitant]
     Active Substance: FOLIC ACID
  3. METHOTREXATE [Concomitant]
     Active Substance: METHOTREXATE
  4. DULOXETINE [Concomitant]
     Active Substance: DULOXETINE
  5. TRILEPTAL [Concomitant]
     Active Substance: OXCARBAZEPINE
  6. FLECAINIDE [Concomitant]
     Active Substance: FLECAINIDE
  7. METOPROLOL [Concomitant]
     Active Substance: METOPROLOL
  8. QUETIAPINE [Concomitant]
     Active Substance: QUETIAPINE
  9. TIZANIDINE [Concomitant]
     Active Substance: TIZANIDINE
  10. ROSUVASTATIN [Concomitant]
     Active Substance: ROSUVASTATIN
  11. DEPO-PROVERA [Concomitant]
     Active Substance: MEDROXYPROGESTERONE ACETATE
  12. LORAZEPAM [Concomitant]
     Active Substance: LORAZEPAM
  13. ASPIRIN [Concomitant]
     Active Substance: ASPIRIN

REACTIONS (2)
  - Loss of consciousness [None]
  - Heart rate increased [None]

NARRATIVE: CASE EVENT DATE: 20231212
